FAERS Safety Report 23922147 (Version 1)
Quarter: 2024Q2

REPORT INFORMATION
  Report Type: Spontaneous
  Country: CA (occurrence: CA)
  Receive Date: 20240531
  Receipt Date: 20240531
  Transmission Date: 20240715
  Serious: Yes (Hospitalization)
  Sender: FDA-Public Use
  Company Number: CA-HALEON-2178412

PATIENT
  Age: 3 Decade
  Sex: Male

DRUGS (26)
  1. DICLOFENAC SODIUM [Suspect]
     Active Substance: DICLOFENAC\DICLOFENAC SODIUM
     Indication: Neuralgia
     Dosage: UNK
     Route: 065
  2. FENTANYL [Suspect]
     Active Substance: FENTANYL\FENTANYL CITRATE
     Indication: Neuralgia
     Route: 062
  3. FENTANYL [Suspect]
     Active Substance: FENTANYL\FENTANYL CITRATE
     Route: 062
  4. OLANZAPINE [Suspect]
     Active Substance: OLANZAPINE
     Indication: Product used for unknown indication
     Route: 065
  5. OLANZAPINE [Suspect]
     Active Substance: OLANZAPINE
     Route: 065
  6. GABAPENTIN [Suspect]
     Active Substance: GABAPENTIN
     Indication: Neuralgia
     Route: 065
  7. GABAPENTIN [Suspect]
     Active Substance: GABAPENTIN
     Route: 065
  8. GABAPENTIN [Suspect]
     Active Substance: GABAPENTIN
     Route: 065
  9. GABAPENTIN [Suspect]
     Active Substance: GABAPENTIN
     Route: 065
  10. GABAPENTIN [Suspect]
     Active Substance: GABAPENTIN
     Route: 065
  11. GABAPENTIN [Suspect]
     Active Substance: GABAPENTIN
     Route: 065
  12. IBUPROFEN [Suspect]
     Active Substance: IBUPROFEN
     Indication: Neuralgia
     Dosage: DURATION 27 DAYS
     Route: 042
  13. ACETAMINOPHEN [Suspect]
     Active Substance: ACETAMINOPHEN
     Indication: Neuralgia
     Route: 065
  14. ACETAMINOPHEN [Suspect]
     Active Substance: ACETAMINOPHEN
     Route: 062
  15. HYDROMORPHONE HYDROCHLORIDE [Suspect]
     Active Substance: HYDROMORPHONE HYDROCHLORIDE
     Indication: Neuralgia
     Route: 030
  16. HYDROMORPHONE HYDROCHLORIDE [Suspect]
     Active Substance: HYDROMORPHONE HYDROCHLORIDE
     Route: 030
  17. HYDROMORPHONE [Suspect]
     Active Substance: HYDROMORPHONE
     Indication: Neuralgia
     Route: 048
  18. KETAMINE HYDROCHLORIDE [Suspect]
     Active Substance: KETAMINE HYDROCHLORIDE
     Indication: Neuralgia
     Route: 042
  19. KETAMINE HYDROCHLORIDE [Suspect]
     Active Substance: KETAMINE HYDROCHLORIDE
     Route: 048
  20. PHENYTOIN [Suspect]
     Active Substance: PHENYTOIN
     Indication: Neuralgia
     Dosage: DURATION 1 DAY
     Route: 065
  21. VENLAFAXINE HYDROCHLORIDE [Suspect]
     Active Substance: VENLAFAXINE HYDROCHLORIDE
     Indication: Neuralgia
     Route: 065
  22. IMMUNE GLOBULIN NOS [Suspect]
     Active Substance: IMMUNE GLOBULIN NOS
     Indication: Guillain-Barre syndrome
     Route: 042
  23. LIDOCAINE [Suspect]
     Active Substance: LIDOCAINE
     Indication: Neuralgia
     Route: 065
  24. NABILONE [Suspect]
     Active Substance: NABILONE
     Indication: Neuralgia
     Route: 042
  25. NABILONE [Suspect]
     Active Substance: NABILONE
     Route: 065
  26. ZOPICLONE [Suspect]
     Active Substance: ZOPICLONE
     Indication: Neuralgia
     Dosage: DURATION 1 DAY
     Route: 065

REACTIONS (2)
  - Inspiratory capacity decreased [Unknown]
  - Drug ineffective [Unknown]
